FAERS Safety Report 18500106 (Version 4)
Quarter: 2021Q2

REPORT INFORMATION
  Report Type: Spontaneous
  Country: US (occurrence: US)
  Receive Date: 20201113
  Receipt Date: 20210412
  Transmission Date: 20210717
  Serious: No
  Sender: FDA-Public Use
  Company Number: US-GLAXOSMITHKLINE-US2020AMR219476

PATIENT
  Age: 74 Year
  Sex: Male

DRUGS (6)
  1. FLOMAX [Suspect]
     Active Substance: TAMSULOSIN HYDROCHLORIDE
     Indication: PRODUCT USED FOR UNKNOWN INDICATION
     Dosage: UNK
  2. MYRBETRIC [Suspect]
     Active Substance: MIRABEGRON
     Indication: NOCTURIA
     Dosage: 25 MG, QD
     Route: 048
     Dates: start: 20200901, end: 20200922
  3. AVODART [Suspect]
     Active Substance: DUTASTERIDE
     Indication: PRODUCT USED FOR UNKNOWN INDICATION
     Dosage: UNK
  4. LANTUS [Concomitant]
     Active Substance: INSULIN GLARGINE
     Indication: DIABETES MELLITUS
     Dosage: UNK
  5. MYRBETRIC [Suspect]
     Active Substance: MIRABEGRON
     Dosage: 50 MG
     Route: 048
     Dates: start: 20200923, end: 20201224
  6. LISINOPRIL. [Concomitant]
     Active Substance: LISINOPRIL
     Indication: DIABETES MELLITUS
     Dosage: UNK

REACTIONS (9)
  - Blood glucose abnormal [Recovering/Resolving]
  - Breast pain [Not Recovered/Not Resolved]
  - Nocturia [Recovered/Resolved]
  - Prostatic specific antigen increased [Unknown]
  - Product availability issue [Unknown]
  - Dizziness [Recovered/Resolved]
  - Drug ineffective for unapproved indication [Unknown]
  - Sleep disorder [Unknown]
  - Musculoskeletal stiffness [Recovering/Resolving]

NARRATIVE: CASE EVENT DATE: 202009
